FAERS Safety Report 6343768-X (Version None)
Quarter: 2009Q3

REPORT INFORMATION
  Report Type: 
  Country: None (occurrence: None)
  Receive Date: 20090908
  Receipt Date: 20090828
  Transmission Date: 20100115
  Serious: Yes (Life-Threatening, Hospitalization)
  Sender: FDA-Public Use
  Company Number: B0587098A

PATIENT
  Sex: Female
  Weight: 47 kg

DRUGS (9)
  1. VALTREX [Suspect]
     Indication: HERPES ZOSTER
     Dosage: 1000MG THREE TIMES PER DAY
     Route: 048
     Dates: start: 20090727, end: 20090730
  2. UNKNOWN DRUG [Suspect]
     Indication: HERPES ZOSTER
     Dosage: 60MG TWICE PER DAY
     Route: 048
     Dates: start: 20090727, end: 20090730
  3. CONIEL [Concomitant]
     Indication: HYPERTENSION
     Dosage: 4MG PER DAY
     Route: 048
     Dates: end: 20090730
  4. BAYCARON [Concomitant]
     Indication: HYPERTENSION
     Route: 048
     Dates: end: 20090730
  5. MAGMITT [Concomitant]
     Indication: CONSTIPATION
     Route: 048
     Dates: end: 20090730
  6. MUCOSTA [Concomitant]
     Indication: HERPES ZOSTER
     Route: 048
     Dates: start: 20090727, end: 20090730
  7. VITANEURIN [Concomitant]
     Route: 048
     Dates: start: 20090727, end: 20090730
  8. NSAID [Concomitant]
     Route: 065
  9. ACYCLOVIR [Concomitant]

REACTIONS (3)
  - ENCEPHALOPATHY [None]
  - NEPHROPATHY [None]
  - RENAL FAILURE ACUTE [None]
